FAERS Safety Report 4393755-6 (Version None)
Quarter: 2004Q3

REPORT INFORMATION
  Report Type: 
  Country: None (occurrence: None)
  Receive Date: 20040701
  Receipt Date: 20040607
  Transmission Date: 20050211
  Serious: Yes (Hospitalization)
  Sender: FDA-Public Use
  Company Number: 04P-066-0264141-00

PATIENT
  Sex: Female

DRUGS (5)
  1. DEPAKENE [Suspect]
     Indication: EPILEPSY
     Dosage: 500 MG, 2 IN 1 D, ORAL
     Route: 048
     Dates: start: 20040109, end: 20040129
  2. AMIODARONE HYDROCHLORIDE [Suspect]
     Indication: ATRIAL FIBRILLATION
     Dosage: 200 MG, 1 IN 1 D, ORAL
     Route: 048
     Dates: start: 20040112, end: 20040129
  3. FUROSEMIDE [Suspect]
     Indication: HYPERTENSION
     Dosage: 40 MG, 1 IN 1 D, PER ORAL
     Route: 048
     Dates: start: 20040116, end: 20040129
  4. AMILORIDE HYDROCHLORIDE [Suspect]
     Indication: HYPERTENSION
     Dosage: 5 MG, 1 IN 1 D, PER ORAL
     Route: 048
     Dates: start: 20040116, end: 20040129
  5. ACENOCOUMAROL [Concomitant]

REACTIONS (6)
  - ATRIAL FIBRILLATION [None]
  - EOSINOPHILIA [None]
  - HYPERTENSION [None]
  - INFECTION [None]
  - PLEURAL EFFUSION [None]
  - PULMONARY TUBERCULOSIS [None]
